FAERS Safety Report 8614092-7 (Version None)
Quarter: 2012Q3

REPORT INFORMATION
  Report Type: 
  Country: None (occurrence: None)
  Receive Date: 20120823
  Receipt Date: 20120727
  Transmission Date: 20120928
  Serious: No
  Sender: FDA-Public Use
  Company Number: US-009507513-1207USA012083

PATIENT

DRUGS (8)
  1. PLAVIX [Concomitant]
  2. LIBRIUM [Concomitant]
  3. VENTOLIN [Suspect]
     Route: 055
  4. GLIPIZIDE [Concomitant]
  5. ALPRAZOLAM [Concomitant]
  6. DIOVAN [Concomitant]
  7. DULERA [Suspect]
     Dosage: 1 DF, BID
     Route: 055
  8. LEVOTHYROXINE SODIUM [Concomitant]

REACTIONS (3)
  - OFF LABEL USE [None]
  - VISION BLURRED [None]
  - MALAISE [None]
